FAERS Safety Report 16084189 (Version 2)
Quarter: 2019Q3

REPORT INFORMATION
  Report Type: Spontaneous
  Country: US (occurrence: US)
  Receive Date: 20190318
  Receipt Date: 20190710
  Transmission Date: 20191004
  Serious: No
  Sender: FDA-Public Use
  Company Number: US-PFIZER INC-2019111151

PATIENT
  Age: 54 Year
  Sex: Female
  Weight: 90.72 kg

DRUGS (5)
  1. VITAMIN D [COLECALCIFEROL] [Concomitant]
     Active Substance: CHOLECALCIFEROL
     Dosage: UNK
  2. IRBESARTAN. [Concomitant]
     Active Substance: IRBESARTAN
     Dosage: UNK
     Dates: start: 201807
  3. LISINOPRIL. [Concomitant]
     Active Substance: LISINOPRIL
     Dosage: UNK
     Dates: end: 201807
  4. GENOTROPIN [Suspect]
     Active Substance: SOMATROPIN
     Indication: DWARFISM
     Dosage: 0.4 MG, INJECTION SUNDAY, MONDAY, TUESDAY, WEDNESDAY, AND THURSDAY
     Dates: start: 201704
  5. B12 METHYLCOBALAMIN [Concomitant]
     Dosage: UNK

REACTIONS (2)
  - Drug level increased [Unknown]
  - Hypertension [Unknown]

NARRATIVE: CASE EVENT DATE: 201811
